FAERS Safety Report 23581042 (Version 3)
Quarter: 2024Q1

REPORT INFORMATION
  Report Type: Spontaneous
  Country: CA (occurrence: CA)
  Receive Date: 20240229
  Receipt Date: 20240327
  Transmission Date: 20240410
  Serious: Yes (Hospitalization)
  Sender: FDA-Public Use
  Company Number: CA-BIOGEN-2023BI01235082

PATIENT
  Sex: Male

DRUGS (2)
  1. SPINRAZA [Suspect]
     Active Substance: NUSINERSEN
     Indication: Spinal muscular atrophy
     Route: 050
     Dates: start: 201905
  2. SPINRAZA [Suspect]
     Active Substance: NUSINERSEN
     Dosage: 0 DAYS. 14 DAYS, 30 DAYS, EVERY 4 MONTHS
     Route: 050
     Dates: start: 20190503

REACTIONS (3)
  - Post lumbar puncture syndrome [Not Recovered/Not Resolved]
  - Procedural pain [Not Recovered/Not Resolved]
  - Meningitis aseptic [Not Recovered/Not Resolved]

NARRATIVE: CASE EVENT DATE: 20230101
